FAERS Safety Report 26204409 (Version 1)
Quarter: 2025Q4

REPORT INFORMATION
  Report Type: Spontaneous
  Country: CN (occurrence: CN)
  Receive Date: 20251226
  Receipt Date: 20251226
  Transmission Date: 20260117
  Serious: Yes (Hospitalization, Other)
  Sender: NOVO NORDISK
  Company Number: CN-NOVOPROD-1589067

PATIENT
  Age: 52 Year
  Sex: Male

DRUGS (2)
  1. WEGOVY [Suspect]
     Active Substance: SEMAGLUTIDE
     Indication: Weight control
     Dosage: 1.7MG
  2. WEGOVY [Suspect]
     Active Substance: SEMAGLUTIDE
     Indication: Weight control
     Dosage: INJECTED SIX TIMES IN TOTAL

REACTIONS (5)
  - Back pain [Unknown]
  - Gallbladder disorder [Unknown]
  - Abdominal pain [Unknown]
  - Affect lability [Unknown]
  - Weight loss poor [Unknown]
